FAERS Safety Report 4976466-5 (Version None)
Quarter: 2006Q2

REPORT INFORMATION
  Report Type: 
  Country: None (occurrence: None)
  Receive Date: 20060412
  Receipt Date: 20060405
  Transmission Date: 20061013
  Serious: Yes (Hospitalization, Other)
  Sender: FDA-Public Use
  Company Number: FRWYE532905APR06

PATIENT
  Age: 45 Year
  Sex: Male

DRUGS (7)
  1. TAZOCILLINE (PIPERACILLIN/TAZOBACTAM, INJECTION) [Suspect]
     Indication: OSTEOMYELITIS
     Dosage: 12G TOTAL DAILY
     Route: 042
     Dates: start: 20060107, end: 20060128
  2. TAZOCILLINE (PIPERACILLIN/TAZOBACTAM, INJECTION) [Suspect]
     Indication: PSEUDOMONAS INFECTION
     Dosage: 12G TOTAL DAILY
     Route: 042
     Dates: start: 20060107, end: 20060128
  3. CIFLOX (CIPROFLOXACIN, , 0) [Suspect]
     Indication: OSTEOMYELITIS
     Dosage: 1500 MG 1X PER 1 DAY
     Route: 048
     Dates: start: 20060107, end: 20060128
  4. CIFLOX (CIPROFLOXACIN, , 0) [Suspect]
     Indication: PSEUDOMONAS INFECTION
     Dosage: 1500 MG 1X PER 1 DAY
     Route: 048
     Dates: start: 20060107, end: 20060128
  5. PLAVIX [Suspect]
     Dosage: 1 DOSE 1X PER 1 DAY
     Route: 048
     Dates: start: 20051230, end: 20060120
  6. NIFEDIPINE [Concomitant]
  7. COLCHICINE [Concomitant]

REACTIONS (4)
  - CYTOLYTIC HEPATITIS [None]
  - NORMOCHROMIC NORMOCYTIC ANAEMIA [None]
  - RENAL FAILURE ACUTE [None]
  - THROMBOTIC MICROANGIOPATHY [None]
